FAERS Safety Report 10313774 (Version 1)
Quarter: 2014Q3

REPORT INFORMATION
  Report Type: Spontaneous
  Country: FR (occurrence: FR)
  Receive Date: 20140718
  Receipt Date: 20140718
  Transmission Date: 20150326
  Serious: Yes (Hospitalization)
  Sender: FDA-Public Use
  Company Number: FR-JNJFOC-20140706635

PATIENT
  Age: 40 Year
  Sex: Female
  Weight: 59 kg

DRUGS (11)
  1. NORVIR [Suspect]
     Active Substance: RITONAVIR
     Indication: HIV INFECTION
     Route: 048
     Dates: start: 20140110
  2. SOFOSBUVIR [Concomitant]
     Active Substance: SOFOSBUVIR
     Route: 065
     Dates: start: 20140602
  3. KIVEXA [Suspect]
     Active Substance: ABACAVIR SULFATE\LAMIVUDINE
     Indication: HIV INFECTION
     Route: 065
     Dates: start: 20140110
  4. HUMALOG [Concomitant]
     Active Substance: INSULIN LISPRO
     Route: 065
     Dates: start: 20140326
  5. PREZISTA [Suspect]
     Active Substance: DARUNAVIR ETHANOLATE
     Indication: HIV INFECTION
     Route: 048
     Dates: start: 20140110
  6. RIMIFON [Suspect]
     Active Substance: ISONIAZID
     Indication: HIV INFECTION
     Route: 065
     Dates: start: 201401
  7. DACLATASVIR [Suspect]
     Active Substance: DACLATASVIR
     Indication: HEPATITIS C
     Route: 048
     Dates: start: 20140602
  8. ISOPTIN [Interacting]
     Active Substance: VERAPAMIL HYDROCHLORIDE
     Indication: HYPERTENSION
     Route: 048
     Dates: start: 20140326, end: 20140620
  9. SOVALDI [Concomitant]
     Active Substance: SOFOSBUVIR
     Indication: HEPATITIS C
     Route: 048
     Dates: start: 20140602
  10. METFORMIN [Concomitant]
     Active Substance: METFORMIN HYDROCHLORIDE
     Route: 065
     Dates: start: 20140326
  11. ALDACTONE [Concomitant]
     Active Substance: SPIRONOLACTONE
     Route: 065
     Dates: start: 20140326

REACTIONS (8)
  - Atrioventricular block complete [Recovered/Resolved]
  - Nausea [None]
  - Oedema peripheral [Recovering/Resolving]
  - Malaise [None]
  - Hypoalbuminaemia [Recovering/Resolving]
  - Weight increased [None]
  - Drug interaction [Unknown]
  - Ascites [Recovering/Resolving]

NARRATIVE: CASE EVENT DATE: 20140620
